FAERS Safety Report 16567845 (Version 1)
Quarter: 2019Q3

REPORT INFORMATION
  Report Type: Spontaneous
  Country: SE (occurrence: SE)
  Receive Date: 20190712
  Receipt Date: 20190712
  Transmission Date: 20191004
  Serious: Yes (Other)
  Sender: FDA-Public Use
  Company Number: SE-ELI_LILLY_AND_COMPANY-SE201907001271

PATIENT
  Age: 54 Year
  Sex: Female

DRUGS (2)
  1. ZYPREXA [Suspect]
     Active Substance: OLANZAPINE
     Dosage: 5 MG, BID
     Route: 065
  2. ZYPREXA [Suspect]
     Active Substance: OLANZAPINE
     Indication: PRODUCT USED FOR UNKNOWN INDICATION
     Dosage: UNK, UNKNOWN
     Route: 065

REACTIONS (10)
  - Counterfeit product administered [Unknown]
  - Cardiac failure [Unknown]
  - Somnolence [Unknown]
  - Drug hypersensitivity [Unknown]
  - Pulmonary toxicity [Unknown]
  - Thermal burn [Unknown]
  - Acute psychosis [Unknown]
  - Toxicity to various agents [Unknown]
  - Memory impairment [Unknown]
  - Rash [Unknown]
